FAERS Safety Report 24394530 (Version 2)
Quarter: 2024Q4

REPORT INFORMATION
  Report Type: Spontaneous
  Country: US (occurrence: US)
  Receive Date: 20241004
  Receipt Date: 20241015
  Transmission Date: 20250114
  Serious: No
  Sender: ROCHE
  Company Number: US-ROCHE-10000092320

PATIENT

DRUGS (2)
  1. VABYSMO [Suspect]
     Active Substance: FARICIMAB-SVOA
     Indication: Product used for unknown indication
     Route: 065
  2. VABYSMO [Suspect]
     Active Substance: FARICIMAB-SVOA
     Dosage: 6MG/0.05ML
     Route: 065

REACTIONS (2)
  - Wrong technique in product usage process [Unknown]
  - No adverse event [Unknown]
